FAERS Safety Report 6683960-8 (Version None)
Quarter: 2010Q2

REPORT INFORMATION
  Report Type: 
  Country: None (occurrence: None)
  Receive Date: 20100416
  Receipt Date: 20100405
  Transmission Date: 20101027
  Serious: Yes (Other)
  Sender: FDA-Public Use
  Company Number: JP-PFIZER INC-2010047712

PATIENT
  Age: 68 Year
  Sex: Male

DRUGS (2)
  1. AMLODIPINE [Suspect]
     Dosage: UNK
     Route: 048
     Dates: start: 20080501, end: 20090101
  2. TENORMIN [Concomitant]
     Dosage: UNK
     Route: 048
     Dates: start: 20081001, end: 20081201

REACTIONS (1)
  - DRUG ERUPTION [None]
